FAERS Safety Report 15558067 (Version 1)
Quarter: 2018Q4

REPORT INFORMATION
  Report Type: Spontaneous
  Country: US (occurrence: US)
  Receive Date: 20181027
  Receipt Date: 20181027
  Transmission Date: 20190205
  Serious: No
  Sender: FDA-Public Use
  Company Number: US-009507513-1810USA011423

PATIENT
  Sex: Female
  Weight: 62.99 kg

DRUGS (2)
  1. CLOTRIMAZOLE (+) BETAMETHASONE DIPROPIONATE [Suspect]
     Active Substance: BETAMETHASONE DIPROPIONATE\CLOTRIMAZOLE
     Indication: ANAL FISSURE
     Dosage: UNK
     Route: 061
     Dates: start: 2018
  2. CLOTRIMAZOLE. [Concomitant]
     Active Substance: CLOTRIMAZOLE

REACTIONS (2)
  - Off label use [Unknown]
  - Product use in unapproved indication [Unknown]
